FAERS Safety Report 8932990 (Version 2)
Quarter: 2013Q1

REPORT INFORMATION
  Report Type: Spontaneous
  Country: GB (occurrence: GB)
  Receive Date: 20121129
  Receipt Date: 20130208
  Transmission Date: 20140127
  Serious: Yes (Death, Hospitalization, Other)
  Sender: FDA-Public Use
  Company Number: PHFR2012GB006159

PATIENT
  Age: 56 Year
  Sex: Male

DRUGS (2)
  1. GLIVEC [Suspect]
     Indication: CHRONIC MYELOID LEUKAEMIA
     Dosage: UNK UKN, UNK
     Dates: start: 20060316, end: 20060625
  2. HYDROXYUREA [Suspect]

REACTIONS (3)
  - Death [Fatal]
  - Blast crisis in myelogenous leukaemia [Unknown]
  - Chronic myeloid leukaemia transformation [Unknown]
